FAERS Safety Report 12372143 (Version 1)
Quarter: 2016Q2

REPORT INFORMATION
  Report Type: Spontaneous
  Country: US (occurrence: US)
  Receive Date: 20160516
  Receipt Date: 20160516
  Transmission Date: 20160815
  Serious: Yes (Other)
  Sender: FDA-Public Use
  Company Number: US-AKRIMAX-TIR-2016-0520

PATIENT
  Sex: Female
  Weight: 95.34 kg

DRUGS (4)
  1. CALCITROL [Concomitant]
     Active Substance: CALCITRIOL
     Indication: PRODUCT USED FOR UNKNOWN INDICATION
     Dosage: 1.5MG DAILY
  2. TIROSINT [Suspect]
     Active Substance: LEVOTHYROXINE SODIUM
     Dosage: 300MCG DAILY
     Route: 048
  3. ELAVIL [Concomitant]
     Active Substance: AMITRIPTYLINE HYDROCHLORIDE
     Indication: PRODUCT USED FOR UNKNOWN INDICATION
     Dosage: 100MG AT BEDTIME
  4. TIROSINT [Suspect]
     Active Substance: LEVOTHYROXINE SODIUM
     Indication: THYROIDECTOMY
     Dosage: 150MCG DAILY
     Route: 048
     Dates: start: 2014

REACTIONS (11)
  - Oedema peripheral [Unknown]
  - Fatigue [Unknown]
  - Oedema [Unknown]
  - Abdominal pain upper [Unknown]
  - Malabsorption [Unknown]
  - Thyroid function test abnormal [Unknown]
  - Neck mass [Not Recovered/Not Resolved]
  - Pulmonary mass [Not Recovered/Not Resolved]
  - Abdominal distension [Unknown]
  - Amnesia [Unknown]
  - Localised oedema [Unknown]
